FAERS Safety Report 12162559 (Version 3)
Quarter: 2016Q2

REPORT INFORMATION
  Report Type: Spontaneous
  Country: US (occurrence: US)
  Receive Date: 20160309
  Receipt Date: 20160531
  Transmission Date: 20160815
  Serious: No
  Sender: FDA-Public Use
  Company Number: US-PFIZER INC-2016115786

PATIENT
  Sex: Female

DRUGS (1)
  1. LYRICA [Suspect]
     Active Substance: PREGABALIN
     Indication: FIBROMA
     Dosage: 50 MG, 2X/DAY

REACTIONS (2)
  - Intentional product use issue [Not Recovered/Not Resolved]
  - Pain [Unknown]
